FAERS Safety Report 8311512-2 (Version None)
Quarter: 2012Q2

REPORT INFORMATION
  Report Type: 
  Country: None (occurrence: None)
  Receive Date: 20120425
  Receipt Date: 20120126
  Transmission Date: 20120825
  Serious: No
  Sender: FDA-Public Use
  Company Number: US-MYLANLABS-2011S1025738

PATIENT
  Age: 76 Year
  Sex: Female

DRUGS (5)
  1. VITAMIN D [Concomitant]
  2. LOSARTAN POTASSIUM [Suspect]
     Indication: HYPERTENSION
     Route: 048
     Dates: start: 20111212, end: 20111212
  3. ALLOPURINOL [Concomitant]
     Indication: GOUT
  4. COLCRYS [Concomitant]
     Indication: GOUT
  5. OMEGA 3 /00931501/ [Concomitant]

REACTIONS (3)
  - SOMNOLENCE [None]
  - NAUSEA [None]
  - HEADACHE [None]
